FAERS Safety Report 5357390-5 (Version None)
Quarter: 2007Q2

REPORT INFORMATION
  Report Type: 
  Country: None (occurrence: None)
  Receive Date: 20070612
  Receipt Date: 20070531
  Transmission Date: 20071010
  Serious: Yes (Hospitalization)
  Sender: FDA-Public Use
  Company Number: 2007-159325-NL

PATIENT
  Age: 30 Year
  Sex: Female

DRUGS (3)
  1. MENOTROPINS [Suspect]
     Dates: start: 20040517
  2. CHORIONIC GONADOTROPIN [Suspect]
     Dosage: 5000 IU ONCE
     Dates: start: 20070526, end: 20070526
  3. FOLLICLE-STIMULATING HORMONE, HUMAN [Concomitant]

REACTIONS (5)
  - ASCITES [None]
  - OVARIAN HYPERSTIMULATION SYNDROME [None]
  - OVARIAN NECROSIS [None]
  - OVARIAN TORSION [None]
  - PELVIC FLUID COLLECTION [None]
